FAERS Safety Report 6845403-0 (Version None)
Quarter: 2010Q3

REPORT INFORMATION
  Report Type: 
  Country: None (occurrence: None)
  Receive Date: 20100715
  Receipt Date: 20081110
  Transmission Date: 20110219
  Serious: No
  Sender: FDA-Public Use
  Company Number: US-PFIZER INC-2007068546

PATIENT
  Sex: Male
  Weight: 81.6 kg

DRUGS (3)
  1. CHANTIX [Suspect]
     Indication: SMOKING CESSATION THERAPY
     Dates: start: 20070725
  2. XANAX [Suspect]
     Indication: ANXIETY
  3. VYTORIN [Concomitant]

REACTIONS (9)
  - ABNORMAL DREAMS [None]
  - CHEST DISCOMFORT [None]
  - CONSTIPATION [None]
  - DEPRESSION [None]
  - DRUG INEFFECTIVE [None]
  - FEELING JITTERY [None]
  - INSOMNIA [None]
  - MEMORY IMPAIRMENT [None]
  - UNEVALUABLE EVENT [None]
